FAERS Safety Report 14956879 (Version 3)
Quarter: 2018Q3

REPORT INFORMATION
  Report Type: Spontaneous
  Country: JP (occurrence: JP)
  Receive Date: 20180531
  Receipt Date: 20180917
  Transmission Date: 20181010
  Serious: Yes (Death, Life-Threatening)
  Sender: FDA-Public Use
  Company Number: JP-ACTELION-A-CH2018-173030

PATIENT
  Age: 71 Year
  Sex: Female

DRUGS (36)
  1. OPSUMIT [Suspect]
     Active Substance: MACITENTAN
     Indication: PULMONARY ARTERIAL HYPERTENSION
     Dosage: 10 MG, QD
     Route: 048
     Dates: start: 20180210, end: 20180331
  2. PREDNISOLONE. [Suspect]
     Active Substance: PREDNISOLONE
     Dosage: 30 MG, QD
     Route: 048
     Dates: start: 20180321, end: 20180331
  3. BAYASPIRIN [Concomitant]
     Active Substance: ASPIRIN
  4. LOXOPROFEN [Concomitant]
     Active Substance: LOXOPROFEN
  5. PREDNISOLONE. [Suspect]
     Active Substance: PREDNISOLONE
     Indication: SYSTEMIC SCLERODERMA
     Dosage: 30 MG, QD
     Route: 048
     Dates: start: 20180203, end: 20180216
  6. PREDNISOLONE. [Suspect]
     Active Substance: PREDNISOLONE
     Dosage: 15 MG, QD
     Route: 048
     Dates: start: 20180301, end: 20180307
  7. ETIZOLAM [Concomitant]
     Active Substance: ETIZOLAM
  8. CORTRIL [Concomitant]
     Active Substance: HYDROCORTISONE
  9. OLOPATADINE HYDROCHLORIDE. [Concomitant]
     Active Substance: OLOPATADINE HYDROCHLORIDE
  10. ZOLPIDEM [Concomitant]
     Active Substance: ZOLPIDEM\ZOLPIDEM TARTRATE
  11. LANSOPRAZOLE. [Concomitant]
     Active Substance: LANSOPRAZOLE
  12. ADCIRCA [Concomitant]
     Active Substance: TADALAFIL
  13. BISOPROLOL FUMARATE. [Concomitant]
     Active Substance: BISOPROLOL FUMARATE
  14. REBAMIPIDE [Concomitant]
     Active Substance: REBAMIPIDE
  15. TRAMCET [Concomitant]
     Active Substance: ACETAMINOPHEN\TRAMADOL
  16. PREDONINE [Concomitant]
     Active Substance: PREDNISOLONE
  17. OXYGEN. [Concomitant]
     Active Substance: OXYGEN
  18. PREDNISOLONE. [Suspect]
     Active Substance: PREDNISOLONE
     Dosage: 25 MG, QD
     Route: 048
     Dates: start: 20180217, end: 20180221
  19. FUROSEMIDE. [Concomitant]
     Active Substance: FUROSEMIDE
  20. ACETAMINOPHEN. [Concomitant]
     Active Substance: ACETAMINOPHEN
  21. UPTRAVI [Concomitant]
     Active Substance: SELEXIPAG
  22. TRAMAL [Concomitant]
     Active Substance: TRAMADOL
  23. NORSPAN [Concomitant]
     Active Substance: BUPRENORPHINE
  24. LYRICA [Concomitant]
     Active Substance: PREGABALIN
  25. THYRADIN S [Concomitant]
     Active Substance: LEVOTHYROXINE SODIUM
  26. PREDNISOLONE. [Suspect]
     Active Substance: PREDNISOLONE
     Dosage: 10 MG, QD
     Route: 048
     Dates: start: 20180308, end: 20180320
  27. BELSOMRA [Concomitant]
     Active Substance: SUVOREXANT
  28. ALFACALCIDOL [Concomitant]
     Active Substance: ALFACALCIDOL
  29. FERROUS CITRATE NA [Concomitant]
     Active Substance: SODIUM FERROUS CITRATE
  30. OMEPRAZOLE. [Concomitant]
     Active Substance: OMEPRAZOLE
  31. PREDNISOLONE. [Suspect]
     Active Substance: PREDNISOLONE
     Dosage: 20 MG, QD
     Route: 048
     Dates: start: 20180222, end: 20180228
  32. SAMSCA [Concomitant]
     Active Substance: TOLVAPTAN
  33. MICARDIS [Concomitant]
     Active Substance: TELMISARTAN
  34. FEBURIC [Concomitant]
     Active Substance: FEBUXOSTAT
  35. BONALON [Concomitant]
     Active Substance: ALENDRONATE SODIUM
  36. CEFALEXIN [Concomitant]
     Active Substance: CEPHALEXIN

REACTIONS (10)
  - Eating disorder [Fatal]
  - Hepatic function abnormal [Not Recovered/Not Resolved]
  - Condition aggravated [Fatal]
  - Oxygen saturation decreased [Fatal]
  - Anaemia [Not Recovered/Not Resolved]
  - Pneumonia [Fatal]
  - Pulmonary arterial hypertension [Fatal]
  - Depressed level of consciousness [Fatal]
  - Platelet count decreased [Recovered/Resolved]
  - Fluid retention [Unknown]

NARRATIVE: CASE EVENT DATE: 20180220
